FAERS Safety Report 5659777-X (Version None)
Quarter: 2008Q1

REPORT INFORMATION
  Report Type: 
  Country: None (occurrence: None)
  Receive Date: 20080311
  Receipt Date: 20070713
  Transmission Date: 20080703
  Serious: No
  Sender: FDA-Public Use
  Company Number: US-BAYER-200712248BCC

PATIENT
  Age: 75 Year
  Sex: Female
  Weight: 64 kg

DRUGS (10)
  1. ALEVE [Suspect]
     Indication: ARTHRALGIA
     Dosage: TOTAL DAILY DOSE: 220 MG  UNIT DOSE: 220 MG
     Route: 048
     Dates: start: 20070709, end: 20070709
  2. ALEVE [Suspect]
     Dosage: UNIT DOSE: 220 MG
     Route: 048
     Dates: start: 20070711, end: 20070711
  3. ALEVE [Suspect]
     Dosage: UNIT DOSE: 220 MG
     Route: 048
     Dates: start: 20070710, end: 20070710
  4. ALEVE [Suspect]
     Dosage: TOTAL DAILY DOSE: 220 MG  UNIT DOSE: 220 MG
     Route: 048
     Dates: start: 20070712
  5. NEXIUM [Concomitant]
  6. ZYRTEC [Concomitant]
  7. CENTRUM SILVER [Concomitant]
  8. CITRUCEL [Concomitant]
  9. UNKNOWN BRAND IBUPROFEN [Concomitant]
  10. SYNTHROID [Concomitant]

REACTIONS (1)
  - ERYTHEMA [None]
